FAERS Safety Report 5495415-7 (Version None)
Quarter: 2007Q4

REPORT INFORMATION
  Report Type: 
  Country: None (occurrence: None)
  Receive Date: 20071023
  Receipt Date: 20071011
  Transmission Date: 20080405
  Serious: Yes (Hospitalization)
  Sender: FDA-Public Use
  Company Number: 238729K07USA

PATIENT
  Age: 59 Year
  Sex: Female

DRUGS (10)
  1. REBIF [Suspect]
     Indication: MULTIPLE SCLEROSIS
     Dosage: 44 MCG, 3 IN 1 WEEKS, SUBCUTANEOUS
     Route: 058
     Dates: start: 20031001
  2. METOPROLOL [Concomitant]
  3. AMLODIPINE [Concomitant]
  4. PROVIGIL [Concomitant]
  5. CLONIDINE [Concomitant]
  6. DIOVAN [Concomitant]
  7. PROTONOX(PANTOPRAZOLE) [Concomitant]
  8. POTASSIUM CHLORIDE [Concomitant]
  9. TEGRETOL [Concomitant]
  10. GABAPENTIN [Concomitant]

REACTIONS (4)
  - COMA [None]
  - CONVULSION [None]
  - ENCEPHALITIS [None]
  - HYPERTENSION [None]
